FAERS Safety Report 9781093 (Version 1)
Quarter: 2013Q4

REPORT INFORMATION
  Report Type: Report from Study
  Country: AU (occurrence: AU)
  Receive Date: 20131224
  Receipt Date: 20131224
  Transmission Date: 20140711
  Serious: Yes (Death)
  Sender: FDA-Public Use
  Company Number: AU-ASTELLAS-2013US013369

PATIENT
  Age: 61 Year
  Sex: Male

DRUGS (6)
  1. ERLOTINIB TABLET [Suspect]
     Indication: PRODUCT USED FOR UNKNOWN INDICATION
     Dosage: UNK
     Route: 065
  2. AVASTIN /01555201/ [Suspect]
     Indication: GLIOBLASTOMA
     Dosage: 10 MG/KG, 9 DOSES
     Route: 065
     Dates: start: 20060608
  3. AVASTIN /01555201/ [Suspect]
     Dosage: 400 MG, UNKNOWN/D
     Route: 065
     Dates: start: 20060622
  4. AVASTIN /01555201/ [Suspect]
     Dosage: 100 MG, UNKNOWN/D
     Route: 065
     Dates: start: 20060927
  5. DEXAMETHASONE [Concomitant]
     Indication: PRODUCT USED FOR UNKNOWN INDICATION
     Dosage: 8 AMP UNK
     Route: 065
     Dates: start: 20060609
  6. NOVABAN [Concomitant]
     Indication: PRODUCT USED FOR UNKNOWN INDICATION
     Dosage: 5 MG, UNKNOWN/D
     Route: 065
     Dates: start: 20060609

REACTIONS (1)
  - Death [Fatal]
